FAERS Safety Report 12242570 (Version 1)
Quarter: 2016Q2

REPORT INFORMATION
  Report Type: Spontaneous
  Country: FR (occurrence: FR)
  Receive Date: 20160406
  Receipt Date: 20160406
  Transmission Date: 20160815
  Serious: Yes (Hospitalization)
  Sender: FDA-Public Use
  Company Number: FR-PFIZER INC-2016185601

PATIENT
  Age: 26 Year
  Sex: Female

DRUGS (4)
  1. MESTINON [Suspect]
     Active Substance: PYRIDOSTIGMINE BROMIDE
     Indication: MUSCULAR WEAKNESS
     Dosage: 180 MG, 3X/DAY
     Route: 048
     Dates: start: 201504
  2. RELPAX [Suspect]
     Active Substance: ELETRIPTAN HYDROBROMIDE
     Indication: HEADACHE
     Dosage: UNK UNK, SINGLE
     Route: 048
     Dates: start: 20160217, end: 20160217
  3. IMUREL [Suspect]
     Active Substance: AZATHIOPRINE SODIUM
     Indication: MUSCULAR WEAKNESS
     Dosage: 150 MG, 1X/DAY
     Route: 048
     Dates: start: 2016
  4. CORTANCYL [Suspect]
     Active Substance: PREDNISONE
     Indication: MUSCULAR WEAKNESS
     Dosage: 15 MG, 1X/DAY
     Route: 048
     Dates: start: 20150428

REACTIONS (2)
  - Cerebral thrombosis [Recovering/Resolving]
  - Vasculitis cerebral [Recovering/Resolving]

NARRATIVE: CASE EVENT DATE: 20160229
